APPROVED DRUG PRODUCT: CARBAMAZEPINE
Active Ingredient: CARBAMAZEPINE
Strength: 200MG
Dosage Form/Route: TABLET;ORAL
Application: A218221 | Product #001 | TE Code: AB
Applicant: BIONPHARMA INC
Approved: Feb 16, 2024 | RLD: No | RS: No | Type: RX